FAERS Safety Report 9159217 (Version 2)
Quarter: 2013Q1

REPORT INFORMATION
  Report Type: Spontaneous
  Country: GB (occurrence: None)
  Receive Date: 20130213
  Receipt Date: 20130215
  Transmission Date: 20140127
  Serious: Yes (Life-Threatening, Hospitalization)
  Sender: FDA-Public Use
  Company Number: GER/UKI/13/0027805

PATIENT
  Age: 63 Year
  Sex: Male

DRUGS (13)
  1. CLOPIDOGREL [Suspect]
     Indication: PRODUCT USED FOR UNKNOWN INDICATION
     Dosage: 75 MG, 1 IN 1 D, ORAL
     Route: 048
  2. CLOPIDOGREL [Suspect]
     Dosage: 75 MG, 1 IN 1 D, ORAL
     Route: 048
  3. CLOPIDOGREL [Suspect]
     Dosage: 75 MG, 1 IN 1 D, ORAL
     Route: 048
  4. ASPIRIN (ACETYLSALICYLIC ACID) [Suspect]
     Indication: PRODUCT USED FOR UNKNOWN INDICATION
     Dosage: 75 MG, 1 IN 1 D, ORAL
     Route: 048
  5. WARFARIN (WARFARIN) [Suspect]
     Indication: PRODUCT USED FOR UNKNOWN INDICATION
     Dosage: STOPPED
     Route: 048
  6. BISOPROLOL (BISOPROLOL FUMARATE) [Concomitant]
     Dosage: 10 MG, 1 IN 1 D, ORAL
     Route: 048
  7. DIGOXIN (DIGOXIN) [Concomitant]
     Dosage: 125 MCG, 1 IN 1 D, ORAL
     Route: 048
  8. EPLERENONE (EPLERENONE) [Concomitant]
     Dosage: 25 MG, 1 IN 1 D, ORAL
     Route: 048
  9. FERROUS SULPHATE (FERROUS SULFATE) [Concomitant]
     Dosage: 200 MG, 3 IN 1 D, ORAL
     Route: 048
  10. FUROSEMIDE (FUROSEMIDE) [Concomitant]
     Dosage: 40 MG, 1 IN 1 D, ORAL
     Route: 048
  11. GLYCERYL TRINITRATE (GLYCERYL TRINITRATE) [Concomitant]
     Dosage: AS REQUIRED, SUBLINGUAL
  12. NIQUITIN (NICOTINE) [Concomitant]
     Dosage: 1 DOSAGE FORMS, 1 IN 1 D, TRANSDERMAL
  13. SIMVASTATIN (SIMVASTATIN) [Concomitant]
     Dosage: 40 MG, 1 IN 1 D, ORAL
     Route: 048

REACTIONS (2)
  - International normalised ratio increased [None]
  - Haemorrhage [None]
